FAERS Safety Report 16485486 (Version 2)
Quarter: 2019Q3

REPORT INFORMATION
  Report Type: Spontaneous
  Country: IT (occurrence: IT)
  Receive Date: 20190627
  Receipt Date: 20190920
  Transmission Date: 20191004
  Serious: Yes (Hospitalization)
  Sender: FDA-Public Use
  Company Number: IT-TEVA-2019-IT-1069992

PATIENT
  Age: 70 Year
  Sex: Female

DRUGS (2)
  1. OXALIPLATINO TEVA 5 MG / ML, CONCENTRATO PER SOLUZIONE PER INFUSIONE. [Suspect]
     Active Substance: OXALIPLATIN
     Indication: PANCREATIC CARCINOMA METASTATIC
     Dosage: 100 MILLIGRAM FOR EVERY 1 CYCLICAL
     Route: 042
     Dates: start: 20190612, end: 20190612
  2. LEDERFOLIN 25 MG POLVERE PER SOLUZIONE INIETTABILE PER USO ENDOVENOSO [Concomitant]
     Route: 065

REACTIONS (2)
  - Tongue oedema [Recovering/Resolving]
  - Paraesthesia oral [Recovering/Resolving]

NARRATIVE: CASE EVENT DATE: 20190612
